FAERS Safety Report 7152899-6 (Version None)
Quarter: 2010Q4

REPORT INFORMATION
  Report Type: 
  Country: None (occurrence: None)
  Receive Date: 20101209
  Receipt Date: 20101209
  Transmission Date: 20110411
  Serious: Yes (Death)
  Sender: FDA-Public Use
  Company Number: None

PATIENT
  Sex: Male
  Weight: 90 kg

DRUGS (2)
  1. BEVACIZUMAB 10MG/ K1 [Suspect]
     Indication: GLIOBLASTOMA
     Dosage: 918MG Q 2 WEEKS IV DRIP
     Route: 041
     Dates: start: 20101102, end: 20101102
  2. VORINOSTAT 100MG MERCK [Suspect]
     Indication: GLIOBLASTOMA
     Dosage: 300MG BID Q 2 WEEKS PO
     Route: 048
     Dates: start: 20101102, end: 20101104

REACTIONS (1)
  - CONVULSION [None]
